FAERS Safety Report 9067352 (Version 3)
Quarter: 2013Q4

REPORT INFORMATION
  Report Type: Report from Study
  Country: FR (occurrence: FR)
  Receive Date: 20130214
  Receipt Date: 20131031
  Transmission Date: 20140711
  Serious: Yes (Death, Disabling, Other)
  Sender: FDA-Public Use
  Company Number: FR-CELGENEUS-056-C4047-12100686

PATIENT
  Age: 72 Year
  Sex: Female
  Weight: 53 kg

DRUGS (6)
  1. CC-4047 [Suspect]
     Indication: PLASMA CELL MYELOMA
     Dosage: 4 MILLIGRAM
     Route: 048
     Dates: start: 20120906, end: 20120930
  2. CC-4047 [Suspect]
     Dosage: 3 MILLIGRAM
     Route: 048
     Dates: start: 20121003
  3. CC-4047 [Suspect]
     Route: 048
  4. DEXAMETHASONE [Concomitant]
     Indication: PLASMA CELL MYELOMA
     Dosage: 40 MILLIGRAM
     Route: 065
     Dates: start: 20120910
  5. KARDEGIC [Concomitant]
     Indication: THROMBOSIS PROPHYLAXIS
     Dosage: 75 MILLIGRAM
     Route: 065
     Dates: start: 20120907
  6. ZELITREX [Concomitant]
     Indication: PLASMA CELL MYELOMA
     Route: 065

REACTIONS (21)
  - Death [Fatal]
  - Neutropenia [Recovered/Resolved]
  - Neutropenia [Unknown]
  - Deafness [Not Recovered/Not Resolved]
  - Major depression [Not Recovered/Not Resolved]
  - Dizziness [Not Recovered/Not Resolved]
  - Headache [Recovered/Resolved]
  - Asthenia [Recovering/Resolving]
  - Rash [Recovered/Resolved]
  - Rash [Recovered/Resolved]
  - White blood cell count decreased [Recovering/Resolving]
  - Platelet count decreased [Recovered/Resolved]
  - Platelet count decreased [Unknown]
  - General physical health deterioration [Unknown]
  - Palpitations [Recovering/Resolving]
  - Weight decreased [Recovering/Resolving]
  - Dyspnoea [Recovering/Resolving]
  - Insomnia [Unknown]
  - Back pain [Recovering/Resolving]
  - Chills [Recovered/Resolved]
  - Pyrexia [Unknown]
